FAERS Safety Report 15596616 (Version 2)
Quarter: 2018Q4

REPORT INFORMATION
  Report Type: Report from Study
  Country: US (occurrence: US)
  Receive Date: 20181107
  Receipt Date: 20181117
  Transmission Date: 20190205
  Serious: Yes (Other)
  Sender: FDA-Public Use
  Company Number: US-TEVA-2018-US-972712

PATIENT
  Age: 25 Year
  Sex: Female

DRUGS (4)
  1. DESONIDE. [Suspect]
     Active Substance: DESONIDE
     Indication: DERMATITIS ATOPIC
     Route: 061
  2. DESOXIMETASONE. [Suspect]
     Active Substance: DESOXIMETASONE
     Indication: DERMATITIS ATOPIC
     Route: 061
  3. CRISABOROLE [Suspect]
     Active Substance: CRISABOROLE
     Indication: DERMATITIS ATOPIC
     Dosage: 4 PERCENT DAILY; 2% TWICE A DAY
     Route: 065
  4. CICLOSPORINE [Suspect]
     Active Substance: CYCLOSPORINE
     Indication: DERMATITIS ATOPIC
     Dosage: 200 MILLIGRAM DAILY;
     Route: 065

REACTIONS (5)
  - Skin plaque [Recovering/Resolving]
  - Steroid withdrawal syndrome [Recovering/Resolving]
  - Eczema [Recovering/Resolving]
  - Rash erythematous [Recovering/Resolving]
  - Drug ineffective [Unknown]
